FAERS Safety Report 9870478 (Version 1)
Quarter: 2014Q1

REPORT INFORMATION
  Report Type: Spontaneous
  Country: US (occurrence: None)
  Receive Date: 20140204
  Receipt Date: 20140204
  Transmission Date: 20141002
  Serious: Yes (Other)
  Sender: FDA-Public Use
  Company Number: None

PATIENT
  Age: 6 Month
  Sex: Male
  Weight: 6.08 kg

DRUGS (2)
  1. FLOVENT HFA [Suspect]
     Indication: ASTHMA
     Dosage: 2 PUFFS  TWICE DAILY  INHALATION
     Route: 055
     Dates: start: 20140115, end: 20140202
  2. FLOVENT HFA [Suspect]
     Indication: COUGH
     Dosage: 2 PUFFS  TWICE DAILY  INHALATION
     Route: 055
     Dates: start: 20140115, end: 20140202

REACTIONS (6)
  - Vomiting [None]
  - Gastroenteritis viral [None]
  - Bronchitis [None]
  - Eye infection [None]
  - Ear infection [None]
  - Drug ineffective [None]
